FAERS Safety Report 23293147 (Version 1)
Quarter: 2023Q4

REPORT INFORMATION
  Report Type: Spontaneous
  Country: GB (occurrence: GB)
  Receive Date: 20231213
  Receipt Date: 20231213
  Transmission Date: 20240110
  Serious: Yes (Other)
  Sender: FDA-Public Use
  Company Number: None

PATIENT

DRUGS (9)
  1. PREDNISOLONE [Suspect]
     Active Substance: PREDNISOLONE
     Dosage: 30 MG (TABLET, RESCUE COURSE : AT ONSET, TH...)
     Dates: start: 20231122
  2. CARBOCYSTEINE [Concomitant]
     Active Substance: CARBOCYSTEINE
     Dosage: 2 DOSAGE FORM, TID
     Dates: start: 20230119
  3. CEPHALEXIN [Concomitant]
     Active Substance: CEPHALEXIN
     Dosage: 2 DOSAGE FORM, QID (ANTIBIOTIC)
     Dates: start: 20230620
  4. BECLOMETHASONE DIPROPIONATE [Concomitant]
     Active Substance: BECLOMETHASONE DIPROPIONATE
     Dosage: UNK (ONE OR TWO PUFFS THROUGH SP...)
     Route: 055
     Dates: start: 20231122
  5. NYSTATIN [Concomitant]
     Active Substance: NYSTATIN
     Dosage: 1 ML (KEPT IN MOUTH AS LONG AS POSSIBLE, FOU...)
     Dates: start: 20231004, end: 20231011
  6. OMEPRAZOLE [Concomitant]
     Active Substance: OMEPRAZOLE
     Indication: Dyspepsia
     Dosage: 1 DOSAGE FORM, QD
     Dates: start: 20230119
  7. ALBUTEROL [Concomitant]
     Active Substance: ALBUTEROL
     Dosage: 2 DOSAGE FORM, PRN
     Route: 055
     Dates: start: 20230620
  8. TRIMETHOPRIM [Concomitant]
     Active Substance: TRIMETHOPRIM
     Dosage: 1 DOSAGE FORM, BID (ANTIBACTERIAL)
     Dates: start: 20231004, end: 20231007
  9. CARBOMER [Concomitant]
     Active Substance: CARBOMER
     Dosage: 1 DROP, PRN
     Dates: start: 20230119

REACTIONS (3)
  - Vomiting [Recovering/Resolving]
  - Chest pain [Recovering/Resolving]
  - Glossodynia [Recovering/Resolving]
